FAERS Safety Report 4575879-3 (Version None)
Quarter: 2005Q1

REPORT INFORMATION
  Report Type: 
  Country: None (occurrence: None)
  Receive Date: 20050207
  Receipt Date: 20050114
  Transmission Date: 20050727
  Serious: Yes (Death, Life-Threatening)
  Sender: FDA-Public Use
  Company Number: 20050100015

PATIENT
  Age: 51 Year
  Sex: Male
  Weight: 58.9676 kg

DRUGS (9)
  1. FENTANYL (250 MCG/5 ML) (BAXTER) [Suspect]
     Indication: PERIOPERATIVE ANALGESIA
     Dosage: 100 MCG DAILY IV
     Route: 042
     Dates: start: 20041208, end: 20041208
  2. MIDAZOLAM [Suspect]
     Indication: ANAESTHESIA
     Dosage: 4 MG DAILY IV
     Route: 042
     Dates: start: 20041208, end: 20041208
  3. MIDAZOLAM [Suspect]
     Indication: PREOPERATIVE CARE
     Dosage: 4 MG DAILY IV
     Route: 042
     Dates: start: 20041208, end: 20041208
  4. FLUMAZENIL [Suspect]
     Indication: REVERSAL OF SEDATION
     Dosage: 0.4 MG DAILY IV
     Route: 042
     Dates: start: 20041208, end: 20041208
  5. SYNTHROID [Concomitant]
  6. NEXIUM [Concomitant]
  7. CALCIUM GLUCONATE [Concomitant]
  8. NARCAN (NALOXETINE HYDROCHLORIDE) [Concomitant]
  9. LIDOCAINE (ATOMIZER) [Concomitant]

REACTIONS (7)
  - ATRIOVENTRICULAR BLOCK COMPLETE [None]
  - CARDIAC ARREST [None]
  - CARDIO-RESPIRATORY ARREST [None]
  - CONVULSION [None]
  - DRUG INEFFECTIVE [None]
  - HYPOXIA [None]
  - PROCEDURAL COMPLICATION [None]
